FAERS Safety Report 17721065 (Version 1)
Quarter: 2020Q2

REPORT INFORMATION
  Report Type: Report from Study
  Country: None (occurrence: US)
  Receive Date: 20200428
  Receipt Date: 20200428
  Transmission Date: 20200714
  Serious: Yes (Other)
  Sender: FDA-Public Use
  Company Number: US-ABBVIE-20K-163-3379274-00

PATIENT
  Age: 62 Year
  Sex: Female

DRUGS (1)
  1. HUMIRA [Suspect]
     Active Substance: ADALIMUMAB
     Indication: RHEUMATOID ARTHRITIS
     Dosage: CITRATE FREE
     Route: 058

REACTIONS (6)
  - Rheumatoid arthritis [Unknown]
  - Carpal tunnel syndrome [Recovering/Resolving]
  - Muscular weakness [Recovering/Resolving]
  - Therapeutic response shortened [Recovering/Resolving]
  - Pain in extremity [Recovering/Resolving]
  - Tendon transfer [Recovering/Resolving]

NARRATIVE: CASE EVENT DATE: 202004
